FAERS Safety Report 12265675 (Version 1)
Quarter: 2016Q2

REPORT INFORMATION
  Report Type: Report from Study
  Country: US (occurrence: US)
  Receive Date: 20160413
  Receipt Date: 20160413
  Transmission Date: 20160815
  Serious: Yes (Death, Other)
  Sender: FDA-Public Use
  Company Number: US-MDT-ADR-2016-00533

PATIENT
  Age: 55 Year
  Sex: Male

DRUGS (17)
  1. BUPIVACAINE. [Suspect]
     Active Substance: BUPIVACAINE
     Dosage: 20.015MG/DAY
     Route: 037
  2. OXYCODONE HYDROCHLORIDE. [Suspect]
     Active Substance: OXYCODONE HYDROCHLORIDE
  3. DILAUDID [Suspect]
     Active Substance: HYDROMORPHONE HYDROCHLORIDE
     Dosage: 4.0031MG/DAY
     Route: 037
  4. DROPERIDOL. [Suspect]
     Active Substance: DROPERIDOL
     Dosage: 333.59MCG/DAY
     Route: 037
  5. TORADOL [Suspect]
     Active Substance: KETOROLAC TROMETHAMINE
     Route: 030
  6. FENTANYL. [Suspect]
     Active Substance: FENTANYL
  7. COMPOUNDED BACLOFEN [Suspect]
     Active Substance: BACLOFEN
     Dosage: 599.96MCG/DAY
     Route: 037
     Dates: start: 20141002, end: 20141003
  8. COMPOUNDED BACLOFEN [Suspect]
     Active Substance: BACLOFEN
     Dosage: 509.64MCG/DAY
     Route: 037
     Dates: end: 20141121
  9. DROPERIDOL. [Suspect]
     Active Substance: DROPERIDOL
     Dosage: 424.7MCG/DAY
     Route: 037
     Dates: end: 20141121
  10. BUPIVACAINE. [Suspect]
     Active Substance: BUPIVACAINE
     Dosage: 25.482MG/DAY
     Route: 037
     Dates: end: 20141121
  11. DROPERIDOL. [Suspect]
     Active Substance: DROPERIDOL
     Dosage: 499.96MCG/DAY
     Route: 037
     Dates: start: 20141002, end: 20141003
  12. DILAUDID [Suspect]
     Active Substance: HYDROMORPHONE HYDROCHLORIDE
     Dosage: 2.4998MG/DAY
     Route: 037
     Dates: start: 20141002, end: 20141003
  13. COMPOUNDED BACLOFEN [Suspect]
     Active Substance: BACLOFEN
     Dosage: 400.31MCG/DAY
     Route: 037
  14. KETAMINE [Suspect]
     Active Substance: KETAMINE
     Dosage: 333.59MCG/DAY
     Route: 037
  15. ACETAMINOPHEN\HYDROCODONE BITARTRATE [Suspect]
     Active Substance: ACETAMINOPHEN\HYDROCODONE BITARTRATE
  16. BUPIVACAINE. [Suspect]
     Active Substance: BUPIVACAINE
     Dosage: 29.998MG/DAY
     Route: 037
     Dates: start: 20141002, end: 20141003
  17. DILAUDID [Suspect]
     Active Substance: HYDROMORPHONE HYDROCHLORIDE
     Dosage: 2.1235MG/DAY
     Route: 037
     Dates: end: 20141121

REACTIONS (10)
  - Squamous cell carcinoma of the oral cavity [Fatal]
  - Adverse drug reaction [Not Recovered/Not Resolved]
  - Nausea [Not Recovered/Not Resolved]
  - Asthenia [Not Recovered/Not Resolved]
  - Musculoskeletal stiffness [Not Recovered/Not Resolved]
  - Hypoaesthesia [Not Recovered/Not Resolved]
  - Vomiting [Not Recovered/Not Resolved]
  - Cognitive disorder [Not Recovered/Not Resolved]
  - Pain [Not Recovered/Not Resolved]
  - No therapeutic response [Not Recovered/Not Resolved]

NARRATIVE: CASE EVENT DATE: 20141003
